FAERS Safety Report 4993429-4 (Version None)
Quarter: 2006Q2

REPORT INFORMATION
  Report Type: 
  Country: None (occurrence: None)
  Receive Date: 20060505
  Receipt Date: 20060424
  Transmission Date: 20061013
  Serious: Yes (Hospitalization)
  Sender: FDA-Public Use
  Company Number: 2006CG00743

PATIENT
  Age: 52 Year
  Sex: Male

DRUGS (11)
  1. MOPRAL [Suspect]
     Route: 048
     Dates: start: 20060302
  2. ACYCLOVIR [Suspect]
     Route: 042
     Dates: start: 20060308, end: 20060309
  3. XATRAL [Suspect]
     Route: 048
     Dates: start: 20060224
  4. INDOCID [Suspect]
     Route: 048
     Dates: start: 20060308
  5. MORPHINE HYDROCHLORIDE AGUETTANT [Suspect]
     Route: 023
     Dates: start: 20060308, end: 20060309
  6. TRIFLUCAN [Suspect]
     Route: 042
     Dates: start: 20060308
  7. GARDENAL [Suspect]
     Dates: start: 20060220
  8. NOZINAN [Suspect]
  9. BISOPROLOL [Suspect]
     Dates: start: 20060224
  10. PROZAC [Suspect]
     Dates: start: 20060220
  11. LOVENOX [Suspect]
     Dates: start: 20060220

REACTIONS (5)
  - COMA [None]
  - DYSPNOEA [None]
  - HYPOTENSION [None]
  - MIOSIS [None]
  - URINARY RETENTION [None]
